FAERS Safety Report 9143988 (Version 2)
Quarter: 2013Q2

REPORT INFORMATION
  Report Type: Spontaneous
  Country: US (occurrence: US)
  Receive Date: 20130306
  Receipt Date: 20130502
  Transmission Date: 20140414
  Serious: Yes (Hospitalization, Other)
  Sender: FDA-Public Use
  Company Number: US-ROCHE-1086959

PATIENT
  Age: 17 Year
  Sex: Male
  Weight: 79.45 kg

DRUGS (2)
  1. ACCUTANE [Suspect]
     Indication: ACNE
     Route: 065
     Dates: start: 199907, end: 200001
  2. ACCUTANE [Suspect]
     Route: 065
     Dates: start: 20010209, end: 200108

REACTIONS (9)
  - Colitis ulcerative [Recovering/Resolving]
  - Inflammatory bowel disease [Unknown]
  - Crohn^s disease [Unknown]
  - Depression [Unknown]
  - Suicidal ideation [Unknown]
  - Polyp [Unknown]
  - Bipolar disorder [Unknown]
  - Epistaxis [Unknown]
  - Acne [Unknown]
